FAERS Safety Report 11198162 (Version 1)
Quarter: 2015Q2

REPORT INFORMATION
  Report Type: Other
  Country: US (occurrence: US)
  Receive Date: 20150618
  Receipt Date: 20150618
  Transmission Date: 20150821
  Serious: No
  Sender: FDA-Public Use
  Company Number: US-LUPIN PHARMACEUTICALS INC.-2015-01095

PATIENT
  Age: 58 Year
  Sex: Male

DRUGS (7)
  1. VANCOMYCIN [Concomitant]
     Active Substance: VANCOMYCIN
     Route: 042
  2. VANCOMYCIN [Concomitant]
     Active Substance: VANCOMYCIN
     Indication: CORYNEBACTERIUM INFECTION
     Route: 042
  3. LINEZOLID. [Concomitant]
     Active Substance: LINEZOLID
     Indication: CORYNEBACTERIUM INFECTION
     Route: 065
  4. RIFAMPIN. [Suspect]
     Active Substance: RIFAMPIN
     Route: 065
  5. LINEZOLID. [Concomitant]
     Active Substance: LINEZOLID
     Route: 065
  6. DOXYCYCLINE. [Concomitant]
     Active Substance: DOXYCYCLINE
     Indication: CORYNEBACTERIUM INFECTION
     Route: 065
  7. RIFAMPIN. [Suspect]
     Active Substance: RIFAMPIN
     Indication: CORYNEBACTERIUM INFECTION
     Route: 065

REACTIONS (4)
  - Weight decreased [Unknown]
  - Nausea [Unknown]
  - Product use issue [Unknown]
  - Vomiting [Unknown]
